FAERS Safety Report 9167030 (Version 1)
Quarter: 2013Q1

REPORT INFORMATION
  Report Type: Spontaneous
  Country: IT (occurrence: IT)
  Receive Date: 20130316
  Receipt Date: 20130316
  Transmission Date: 20140127
  Serious: Yes (Death)
  Sender: FDA-Public Use
  Company Number: IT-B.I. PHARMACEUTICALS,INC./RIDGEFIELD-2013-IT-00176IT

PATIENT
  Age: 80 Year
  Sex: Male

DRUGS (5)
  1. SPIRIVA [Suspect]
     Indication: DYSPNOEA
     Dosage: 18 MCG
     Route: 055
  2. ALIFLUS [Suspect]
     Indication: DYSPNOEA
     Dosage: STRENGTH: 50MCG/500MCG
  3. CONCOR [Suspect]
     Indication: HYPERTENSION
     Dosage: HALF A TABLET
     Route: 048
  4. ZANEDIP [Suspect]
     Indication: HYPERTENSION
     Dosage: 20 MG
     Route: 048
  5. BLOPRESS [Suspect]
     Indication: HYPERTENSION
     Dosage: 16 MG
     Route: 048

REACTIONS (1)
  - Cardiac arrest [Fatal]
